FAERS Safety Report 15313978 (Version 1)
Quarter: 2018Q3

REPORT INFORMATION
  Report Type: Spontaneous
  Country: GB (occurrence: GB)
  Receive Date: 20180824
  Receipt Date: 20180824
  Transmission Date: 20181010
  Serious: Yes (Hospitalization, Other)
  Sender: FDA-Public Use
  Company Number: GB-TEVA-2018-GB-948347

PATIENT
  Sex: Female

DRUGS (2)
  1. IFOSFAMIDE. [Concomitant]
     Active Substance: IFOSFAMIDE
  2. DOXORUBICIN [Suspect]
     Active Substance: DOXORUBICIN
     Route: 065

REACTIONS (3)
  - Thrombocytopenia [Unknown]
  - Infection [Recovering/Resolving]
  - White blood cell count decreased [Unknown]
